FAERS Safety Report 16174790 (Version 1)
Quarter: 2019Q2

REPORT INFORMATION
  Report Type: Spontaneous
  Country: JP (occurrence: JP)
  Receive Date: 20190409
  Receipt Date: 20190409
  Transmission Date: 20190711
  Serious: Yes (Death)
  Sender: FDA-Public Use
  Company Number: JP-BAYER-2019-069981

PATIENT
  Age: 82 Year
  Sex: Male

DRUGS (3)
  1. BAYASPIRIN 100 MG [Suspect]
     Active Substance: ASPIRIN
     Dosage: 100 MG, QD
     Route: 048
  2. WARFARIN K [Concomitant]
     Active Substance: WARFARIN POTASSIUM
     Dosage: DAILY DOSE 4.5 MG
  3. ANTI DIABETIC [Concomitant]

REACTIONS (1)
  - Death [Fatal]

NARRATIVE: CASE EVENT DATE: 20120128
